FAERS Safety Report 11090755 (Version 3)
Quarter: 2015Q3

REPORT INFORMATION
  Report Type: Spontaneous
  Country: US (occurrence: US)
  Receive Date: 20150505
  Receipt Date: 20150817
  Transmission Date: 20151125
  Serious: Yes (Hospitalization, Other)
  Sender: FDA-Public Use
  Company Number: US-PFIZER INC-2015150006

PATIENT
  Age: 65 Year
  Sex: Female
  Weight: 88 kg

DRUGS (1)
  1. VFEND [Suspect]
     Active Substance: VORICONAZOLE
     Indication: FUNGAL INFECTION
     Dosage: 200 MG, 2 OR 3 TIMES A DAY
     Route: 048
     Dates: start: 201204

REACTIONS (9)
  - Memory impairment [Unknown]
  - Oesophageal disorder [Unknown]
  - Device related infection [Unknown]
  - Mitral valve disease [Unknown]
  - Pneumonia aspiration [Unknown]
  - Fungaemia [Unknown]
  - Cerebrovascular accident [Unknown]
  - Hiatus hernia [Unknown]
  - Fungal infection [Unknown]

NARRATIVE: CASE EVENT DATE: 201502
